FAERS Safety Report 20569261 (Version 1)
Quarter: 2022Q1

REPORT INFORMATION
  Report Type: Other
  Country: KR (occurrence: None)
  Receive Date: 20220308
  Receipt Date: 20220308
  Transmission Date: 20220423
  Serious: Yes (Death)
  Sender: FDA-Public Use
  Company Number: KR-ROCHE-3038093

PATIENT
  Age: 64 Year
  Sex: Male

DRUGS (9)
  1. ATEZOLIZUMAB [Suspect]
     Active Substance: ATEZOLIZUMAB
     Indication: Small cell lung cancer
     Route: 042
     Dates: start: 20211222, end: 20220117
  2. DEXTROSE [Concomitant]
     Active Substance: DEXTROSE
     Dosage: DEXTROSE INJ 5% [200ML]?TOTAL DAILY DOSE/UNIT: 200ML
     Dates: start: 20220201, end: 20220202
  3. HYDROCORTISONE SODIUM SUCCINATE [Concomitant]
     Active Substance: HYDROCORTISONE SODIUM SUCCINATE
     Dosage: TOTAL DAILY DOSE/UNIT:: 1VIA
     Dates: start: 20220201, end: 20220202
  4. TEICONIN [Concomitant]
     Dosage: TEICONIN INJ [400MG]?TOTAL DAILY DOSE/UNIT: 840 MG
     Dates: start: 20220201, end: 20220202
  5. SODIUM CHLORIDE [Concomitant]
     Active Substance: SODIUM CHLORIDE
     Dosage: NORMAL SALINE INJ (JW) [100ML]?TOTAL DAILY DOSE/UNIT:300ML
     Dates: start: 20220201, end: 20220202
  6. NORPIN [NOREPINEPHRINE] [Concomitant]
     Dosage: NORPIN INJ [20MG]?TOTAL DAILY DOSE/UNIT: 20MG
     Dates: start: 20220201, end: 20220202
  7. VASOPRESSIN [Concomitant]
     Active Substance: VASOPRESSIN
     Dosage: VASOPRESSIN INJ [20VU]?TOTAL DAILY DOSE/UNIT: 1AMP
     Dates: start: 20220201, end: 20220202
  8. SK ALBUMIN [Concomitant]
     Dosage: SK ALBUMIN INJ 20% [100ML]?TOTAL DAILY DOSE/UNIT: 1BTL
     Dates: start: 20220201, end: 20220201
  9. MORPHINE SULFATE [Concomitant]
     Active Substance: MORPHINE SULFATE
     Dosage: MORPHINE SULFATE INJ 100MG?TOTAL DAILY DOSE/UNIT: 100MG
     Dates: start: 20220202, end: 20220202

REACTIONS (1)
  - Pneumonia [Fatal]

NARRATIVE: CASE EVENT DATE: 20220201
